FAERS Safety Report 10539026 (Version 2)
Quarter: 2014Q4

REPORT INFORMATION
  Report Type: Report from Study
  Country: IL (occurrence: IL)
  Receive Date: 20141023
  Receipt Date: 20141023
  Transmission Date: 20150529
  Serious: Yes (Life-Threatening, Hospitalization)
  Sender: FDA-Public Use
  Company Number: IL-JNJFOC-20140907766

PATIENT
  Age: 74 Year
  Sex: Female

DRUGS (1)
  1. IBRUTINIB [Suspect]
     Active Substance: IBRUTINIB
     Indication: CHRONIC LYMPHOCYTIC LEUKAEMIA
     Route: 048

REACTIONS (7)
  - Skin lesion [Recovering/Resolving]
  - Pulmonary oedema [Recovered/Resolved]
  - Pneumonia [Recovering/Resolving]
  - Hypotension [Recovered/Resolved]
  - Infection [Recovered/Resolved]
  - Renal failure [Recovering/Resolving]
  - Diarrhoea [Recovered/Resolved]
